FAERS Safety Report 18348608 (Version 1)
Quarter: 2020Q4

REPORT INFORMATION
  Report Type: Spontaneous
  Country: US (occurrence: US)
  Receive Date: 20201006
  Receipt Date: 20201006
  Transmission Date: 20210114
  Serious: Yes (Life-Threatening)
  Sender: FDA-Public Use
  Company Number: US-PFIZER INC-2020381194

PATIENT
  Age: 6 Month
  Sex: Male

DRUGS (1)
  1. PHYTOMENADIONE [Suspect]
     Active Substance: PHYTONADIONE
     Indication: ACUTE HEPATIC FAILURE
     Dosage: UNK

REACTIONS (1)
  - Drug ineffective [Recovered/Resolved]
